FAERS Safety Report 23180180 (Version 1)
Quarter: 2023Q4

REPORT INFORMATION
  Report Type: Spontaneous
  Country: US (occurrence: US)
  Receive Date: 20231114
  Receipt Date: 20231114
  Transmission Date: 20240109
  Serious: No
  Sender: FDA-Public Use
  Company Number: US-AUROBINDO-AUR-APL-2023-051293

PATIENT
  Age: 33 Year
  Sex: Female
  Weight: 81.1 kg

DRUGS (1)
  1. INCASSIA [Suspect]
     Active Substance: NORETHINDRONE
     Indication: Contraception
     Dosage: 1 DOSAGE FORM, DAILY
     Route: 065
     Dates: start: 20230722

REACTIONS (3)
  - Drug ineffective [Unknown]
  - Product physical issue [Unknown]
  - Wrong technique in product usage process [Unknown]
